FAERS Safety Report 25508348 (Version 1)
Quarter: 2025Q3

REPORT INFORMATION
  Report Type: Spontaneous
  Country: CN (occurrence: CN)
  Receive Date: 20250703
  Receipt Date: 20250703
  Transmission Date: 20251020
  Serious: Yes (Life-Threatening, Disabling, Other)
  Sender: GE HEALTHCARE
  Company Number: None

PATIENT
  Age: 68 Year
  Sex: Male
  Weight: 90 kg

DRUGS (2)
  1. VISIPAQUE [Suspect]
     Active Substance: IODIXANOL
     Indication: Angiogram cerebral
     Route: 040
     Dates: start: 20250618, end: 20250618
  2. VISIPAQUE [Suspect]
     Active Substance: IODIXANOL
     Indication: Cerebral endovascular aneurysm repair

REACTIONS (13)
  - Brain oedema [Recovered/Resolved with Sequelae]
  - Restlessness [Unknown]
  - Hemiplegia [Recovered/Resolved with Sequelae]
  - Tachypnoea [Unknown]
  - Dyspnoea [Unknown]
  - Aphasia [Recovered/Resolved with Sequelae]
  - Loss of consciousness [Recovered/Resolved with Sequelae]
  - Unresponsive to stimuli [Recovering/Resolving]
  - Hyperpyrexia [Recovering/Resolving]
  - Chills [Unknown]
  - Blood pressure increased [Recovering/Resolving]
  - Heart rate increased [Recovering/Resolving]
  - Contrast encephalopathy [Recovered/Resolved with Sequelae]

NARRATIVE: CASE EVENT DATE: 20250618
